FAERS Safety Report 15580539 (Version 1)
Quarter: 2018Q4

REPORT INFORMATION
  Report Type: Report from Study
  Country: DE (occurrence: DE)
  Receive Date: 20181102
  Receipt Date: 20181102
  Transmission Date: 20190205
  Serious: Yes (Hospitalization)
  Sender: FDA-Public Use
  Company Number: DE-BAYER-RCH-110222

PATIENT
  Age: 76 Year
  Sex: Female
  Weight: 66 kg

DRUGS (6)
  1. DILZEM [Suspect]
     Active Substance: DILTIAZEM
     Indication: CORONARY ARTERY DISEASE
     Route: 065
     Dates: start: 19931111, end: 19931201
  2. ISMO [Concomitant]
     Active Substance: ISOSORBIDE MONONITRATE
     Indication: CORONARY ARTERY DISEASE
     Dosage: 40 MG (DAILY DOSE), ,
  3. LOPIRIN (CAPTOPRIL) [Suspect]
     Active Substance: CAPTOPRIL
     Indication: CARDIAC FAILURE
     Route: 065
     Dates: start: 19931116, end: 19931201
  4. EUGLUCON N [Suspect]
     Active Substance: GLYBURIDE
     Indication: DIABETES MELLITUS
     Dosage: 7 MG (DAILY DOSE), , ORAL
     Route: 048
     Dates: end: 19931201
  5. ASPIRIN. [Suspect]
     Active Substance: ASPIRIN
     Indication: CORONARY ARTERY DISEASE
     Dosage: UNK
     Route: 065
     Dates: start: 19931111, end: 19931201
  6. NOVODIGAL [BETA-ACETYLDIGOXIN] [Concomitant]
     Indication: CARDIAC FAILURE

REACTIONS (6)
  - Mouth ulceration [Recovering/Resolving]
  - Stevens-Johnson syndrome [Recovering/Resolving]
  - Erythema [Recovering/Resolving]
  - Rash [Recovering/Resolving]
  - Skin disorder [Recovering/Resolving]
  - Skin burning sensation [Recovering/Resolving]

NARRATIVE: CASE EVENT DATE: 19931128
